FAERS Safety Report 24615963 (Version 2)
Quarter: 2024Q4

REPORT INFORMATION
  Report Type: Report from Study
  Country: CA (occurrence: CA)
  Receive Date: 20241113
  Receipt Date: 20241127
  Transmission Date: 20250115
  Serious: Yes (Other)
  Sender: ABBVIE
  Company Number: US-ABBVIE-6001549

PATIENT
  Age: 59 Year
  Sex: Female

DRUGS (2)
  1. CARBIDOPA\LEVODOPA [Suspect]
     Active Substance: CARBIDOPA\LEVODOPA
     Indication: Parkinson^s disease
     Dosage: DUODOPA-LEVODOPA20MG/ML,CARBIDOPAMONOHYDRATE5MG/ML
     Route: 050
     Dates: start: 20190411
  2. CARBIDOPA\LEVODOPA [Suspect]
     Active Substance: CARBIDOPA\LEVODOPA

REACTIONS (5)
  - Device issue [Not Recovered/Not Resolved]
  - Dyskinesia [Unknown]
  - On and off phenomenon [Unknown]
  - Device connection issue [Unknown]
  - Incorrect route of product administration [Unknown]

NARRATIVE: CASE EVENT DATE: 20231101
